FAERS Safety Report 10191946 (Version 1)
Quarter: 2014Q2

REPORT INFORMATION
  Report Type: Spontaneous
  Country: US (occurrence: US)
  Receive Date: 20140523
  Receipt Date: 20140523
  Transmission Date: 20141212
  Serious: No
  Sender: FDA-Public Use
  Company Number: US-PFIZER INC-2014141863

PATIENT
  Age: 68 Year
  Sex: Female
  Weight: 89.8 kg

DRUGS (2)
  1. CELEBREX [Suspect]
     Indication: ARTHRALGIA
     Dosage: UNK, 2X/DAY
     Route: 048
     Dates: start: 20140318, end: 2014
  2. CELEBREX [Suspect]
     Dosage: UNK, 1X/DAY
     Route: 048
     Dates: start: 2014, end: 20140512

REACTIONS (1)
  - Pain [Not Recovered/Not Resolved]
